FAERS Safety Report 5808308-X (Version None)
Quarter: 2008Q3

REPORT INFORMATION
  Report Type: 
  Country: None (occurrence: None)
  Receive Date: 20080702
  Receipt Date: 20080618
  Transmission Date: 20090109
  Serious: Yes (Other)
  Sender: FDA-Public Use
  Company Number: LIT-005-08-US

PATIENT
  Age: 12 Year
  Sex: Male
  Weight: 56 kg

DRUGS (2)
  1. INTRAVENOUS IMMUNE GLOBULIN (HUMAN) STRENGTH/MFR UNK [Suspect]
     Indication: IMMUNODEFICIENCY COMMON VARIABLE
     Dosage: DOSE, EVERY MONTH;
  2. AMOXICILLIN AND CLAVULANATE POTASSIUM [Concomitant]

REACTIONS (9)
  - ABDOMINAL WALL DISORDER [None]
  - BLOOD ALBUMIN DECREASED [None]
  - BLOOD IMMUNOGLOBULIN G INCREASED [None]
  - EYE SWELLING [None]
  - FOCAL GLOMERULOSCLEROSIS [None]
  - NEPHROTIC SYNDROME [None]
  - OEDEMA PERIPHERAL [None]
  - SWELLING [None]
  - TUBULOINTERSTITIAL NEPHRITIS [None]
